FAERS Safety Report 21412833 (Version 3)
Quarter: 2022Q4

REPORT INFORMATION
  Report Type: Spontaneous
  Country: CN (occurrence: CN)
  Receive Date: 20221005
  Receipt Date: 20221014
  Transmission Date: 20230113
  Serious: Yes (Other)
  Sender: FDA-Public Use
  Company Number: CN-AMERICAN REGENT INC-2022002835

PATIENT
  Age: 58 Year
  Sex: Male
  Weight: 65 kg

DRUGS (5)
  1. VENOFER [Suspect]
     Active Substance: IRON SUCROSE
     Indication: Gastrointestinal haemorrhage
     Dosage: 200 MILLIGRAM, DILUTED IN 100ML OF SODIUM CHLORIDE INJECTION (200 MG,1 IN 3 D)
     Dates: start: 20220902, end: 20220908
  2. VENOFER [Suspect]
     Active Substance: IRON SUCROSE
     Indication: Mineral supplementation
  3. VENOFER [Suspect]
     Active Substance: IRON SUCROSE
     Indication: Anaemia
  4. OMEPRAZOLE SODIUM [Suspect]
     Active Substance: OMEPRAZOLE SODIUM
     Indication: Gastrointestinal haemorrhage
     Dosage: 40MG EACH TIME DILUTED IN 100ML OF SODIUM CHLORIDE INJECTION (40 MG,2 IN 1 D)
     Dates: start: 20220830, end: 20220910
  5. SOMATOSTATIN [Concomitant]
     Active Substance: SOMATOSTATIN
     Indication: Gastrointestinal haemorrhage
     Dosage: DILUTED IN 50ML OF SODIUM CHLORIDE INJECTION GIVEN VIA PUMP INJECTION ROUTE (3 MG,2 IN 1 D)
     Dates: start: 20220830, end: 20220903

REACTIONS (2)
  - Abdominal rigidity [Recovered/Resolved]
  - Hiccups [Recovered/Resolved]

NARRATIVE: CASE EVENT DATE: 20220908
